FAERS Safety Report 9745723 (Version 1)
Quarter: 2013Q4

REPORT INFORMATION
  Report Type: Report from Study
  Country: FR (occurrence: FR)
  Receive Date: 20131211
  Receipt Date: 20131211
  Transmission Date: 20140711
  Serious: Yes (Hospitalization, Other)
  Sender: FDA-Public Use
  Company Number: FR-ASTELLAS-2013US012839

PATIENT
  Age: 3 Year
  Sex: Male

DRUGS (10)
  1. TACROLIMUS OINTMENT [Suspect]
     Indication: DERMATITIS ATOPIC
     Dosage: 0.1 %, UNKNOWN/D
     Route: 061
     Dates: start: 20080215
  2. DIPROSONE                          /00008502/ [Concomitant]
     Indication: DERMATITIS ATOPIC
     Dosage: UNK
     Route: 065
  3. ATOPICLAIR [Concomitant]
     Indication: DERMATITIS ATOPIC
     Dosage: UNK
     Route: 065
  4. DEXERYL                            /00557601/ [Concomitant]
     Indication: DERMATITIS ATOPIC
     Dosage: UNK
     Route: 065
  5. FUCIDINE                           /00065701/ [Concomitant]
     Indication: DERMATITIS ATOPIC
     Dosage: UNK
     Route: 065
  6. ROGE CAVAILLES GEL [Concomitant]
     Indication: DERMATITIS ATOPIC
     Dosage: UNK
     Route: 065
  7. LISTRE [Concomitant]
     Indication: DERMATITIS ATOPIC
     Dosage: 100 ML, UNKNOWN/D
     Route: 065
  8. CLOBEX                             /00012002/ [Concomitant]
     Indication: DERMATITIS ATOPIC
     Dosage: UNK
     Route: 065
  9. EXOMEGA [Concomitant]
     Indication: DERMATITIS ATOPIC
     Dosage: UNK
     Route: 065
  10. TRIXERA [Concomitant]
     Indication: DERMATITIS ATOPIC
     Dosage: UNK
     Route: 065

REACTIONS (3)
  - Off label use [Unknown]
  - Asthma [Unknown]
  - Tonsillectomy [Unknown]
